FAERS Safety Report 5468861-5 (Version None)
Quarter: 2007Q3

REPORT INFORMATION
  Report Type: 
  Country: None (occurrence: None)
  Receive Date: 20070926
  Receipt Date: 20070916
  Transmission Date: 20080115
  Serious: Yes (Other)
  Sender: FDA-Public Use
  Company Number: AU-PFIZER INC-2007078850

PATIENT
  Age: 70 Year
  Sex: Female
  Weight: 97 kg

DRUGS (11)
  1. ATORVASTATIN CALCIUM [Suspect]
  2. SPIRONOLACTONE [Suspect]
  3. FRUSEMIDE [Suspect]
  4. INSULINS AND ANALOGUES, LONG-ACTING [Concomitant]
  5. INSULINS AND ANALOGUES,FAST-ACTING [Concomitant]
  6. METFORMIN [Concomitant]
  7. DRUG USED IN DIABETES [Concomitant]
  8. ACARBOSE [Concomitant]
  9. ALL OTHER THERAPEUTIC PRODUCTS [Concomitant]
  10. BETA BLOCKING AGENTS [Concomitant]
  11. NSAID'S [Concomitant]

REACTIONS (5)
  - ANKLE FRACTURE [None]
  - BLOOD CREATININE ABNORMAL [None]
  - BLOOD URIC ACID ABNORMAL [None]
  - DRUG INTOLERANCE [None]
  - FRACTURED SACRUM [None]
